FAERS Safety Report 8304018-8 (Version None)
Quarter: 2012Q2

REPORT INFORMATION
  Report Type: 
  Country: None (occurrence: None)
  Receive Date: 20120420
  Receipt Date: 20120420
  Transmission Date: 20120825
  Serious: Yes (Death)
  Sender: FDA-Public Use
  Company Number: None

PATIENT
  Sex: Male
  Weight: 92.5338 kg

DRUGS (1)
  1. SERTRALINE HYDROCHLORIDE [Suspect]
     Indication: DEPRESSION
     Dosage: SERTRALINE 200MG DAILY PO ; ONE 150 MG DOSE + ONE 200 MG DOSE IN HOSP.
     Route: 048

REACTIONS (1)
  - ASPHYXIA [None]
